FAERS Safety Report 19247233 (Version 1)
Quarter: 2021Q2

REPORT INFORMATION
  Report Type: Spontaneous
  Country: US (occurrence: US)
  Receive Date: 20210512
  Receipt Date: 20210512
  Transmission Date: 20210717
  Serious: Yes (Other)
  Sender: FDA-Public Use
  Company Number: None

PATIENT
  Age: 43 Year
  Sex: Female

DRUGS (4)
  1. BENADRYL [Concomitant]
     Active Substance: DIPHENHYDRAMINE HYDROCHLORIDE
     Dates: start: 20210210, end: 20210210
  2. PROMETHAZINE [Concomitant]
     Active Substance: PROMETHAZINE HYDROCHLORIDE
     Dates: start: 20210210, end: 20210210
  3. IRON SUCROSE [Suspect]
     Active Substance: IRON SUCROSE
     Indication: ANAEMIA
     Dosage: ?          OTHER FREQUENCY:ONCE;?
     Route: 041
     Dates: start: 20210210, end: 20210210
  4. DECADRON [Concomitant]
     Active Substance: DEXAMETHASONE
     Dates: start: 20210210, end: 20210210

REACTIONS (2)
  - Dyspnoea [None]
  - Urticaria [None]

NARRATIVE: CASE EVENT DATE: 20210210
